FAERS Safety Report 6201378-9 (Version None)
Quarter: 2009Q2

REPORT INFORMATION
  Report Type: 
  Country: None (occurrence: None)
  Receive Date: 20090526
  Receipt Date: 20090518
  Transmission Date: 20091009
  Serious: Yes (Other)
  Sender: FDA-Public Use
  Company Number: US-ROCHE-630939

PATIENT
  Sex: Male
  Weight: 65.8 kg

DRUGS (6)
  1. CAPECITABINE [Suspect]
     Dosage: STRENGTH: 500 MG AND 150 MG
     Route: 048
     Dates: start: 20090228, end: 20090427
  2. CAPECITABINE [Suspect]
     Dosage: STRENGTH: 150 MG, START DATE: 2009
     Route: 048
  3. LASIX [Concomitant]
  4. METFORMIN HCL [Concomitant]
  5. SIMVASTATIN [Concomitant]
  6. NEXIUM [Concomitant]

REACTIONS (1)
  - DISEASE PROGRESSION [None]
